FAERS Safety Report 22035943 (Version 2)
Quarter: 2023Q1

REPORT INFORMATION
  Report Type: Report from Study
  Country: CO (occurrence: CO)
  Receive Date: 20230224
  Receipt Date: 20230302
  Transmission Date: 20230418
  Serious: Yes (Hospitalization, Other)
  Sender: FDA-Public Use
  Company Number: CO-NOVOPROD-1002695

PATIENT
  Age: 90 Year
  Sex: Female
  Weight: 72 kg

DRUGS (9)
  1. DIOSMIN [Concomitant]
     Active Substance: DIOSMIN
     Indication: Phlebitis
     Dosage: 1 TABLET
     Route: 048
     Dates: start: 20201213
  2. EMPAGLIFLOZIN\METFORMIN HYDROCHLORIDE [Suspect]
     Active Substance: EMPAGLIFLOZIN\METFORMIN HYDROCHLORIDE
     Indication: Hypertension
     Dosage: 2 TABLETS
     Route: 048
     Dates: start: 20220813
  3. CARVEDILOL [Concomitant]
     Active Substance: CARVEDILOL
     Indication: Product used for unknown indication
     Dosage: 2 TABLETS
     Route: 048
     Dates: start: 20151213
  4. INSULIN GLARGINE [Concomitant]
     Active Substance: INSULIN GLARGINE
     Indication: Type 2 diabetes mellitus
     Dosage: 30 IU, QD
     Route: 058
     Dates: start: 20021213
  5. ROSUVASTATIN [Concomitant]
     Active Substance: ROSUVASTATIN
     Indication: Blood triglycerides increased
     Dosage: 1 TABLET
     Route: 048
     Dates: start: 20021213
  6. OZEMPIC [Suspect]
     Active Substance: SEMAGLUTIDE
     Indication: Type 2 diabetes mellitus
     Dosage: 0.50 MG, QW
     Route: 058
     Dates: start: 20220613
  7. ESOMEPRAZOLE [Concomitant]
     Active Substance: ESOMEPRAZOLE
     Indication: Gastritis
     Dosage: 1 TABLET, QD
     Route: 048
     Dates: start: 20210203
  8. VALSARTAN [Concomitant]
     Active Substance: VALSARTAN
     Dosage: 1 TABLET, QD
     Route: 048
  9. VITAMIN D3 [Concomitant]
     Active Substance: CHOLECALCIFEROL
     Indication: Osteoporosis
     Dosage: 1 TABLET, QD
     Route: 048

REACTIONS (8)
  - Decreased appetite [Not Recovered/Not Resolved]
  - Spinal fracture [Not Recovered/Not Resolved]
  - Fall [Unknown]
  - Delirium [Recovered/Resolved]
  - Urinary tract infection [Not Recovered/Not Resolved]
  - Discouragement [Not Recovered/Not Resolved]
  - Somnolence [Recovered/Resolved]
  - Speech disorder [Recovered/Resolved]

NARRATIVE: CASE EVENT DATE: 20221001
